FAERS Safety Report 10102354 (Version 2)
Quarter: 2014Q2

REPORT INFORMATION
  Report Type: Spontaneous
  Country: US (occurrence: US)
  Receive Date: 20140424
  Receipt Date: 20140603
  Transmission Date: 20141212
  Serious: No
  Sender: FDA-Public Use
  Company Number: US-PFIZER INC-2014111664

PATIENT
  Sex: 0

DRUGS (1)
  1. OXYTETRACYCLINE HCL [Suspect]
     Dosage: UNK

REACTIONS (1)
  - Tooth discolouration [Unknown]
